FAERS Safety Report 9528612 (Version 1)
Quarter: 2013Q1

REPORT INFORMATION
  Report Type: Spontaneous
  Country: US (occurrence: None)
  Receive Date: 20130320
  Receipt Date: 20130320
  Transmission Date: 20140127
  Serious: Yes (Death)
  Sender: FDA-Public Use
  Company Number: 075273

PATIENT
  Age: 33 Year
  Sex: Male

DRUGS (4)
  1. ALPRAZOLAM [Suspect]
     Dosage: ( TO NOT CONTINUING)
  2. HEROIN [Suspect]
  3. OXYCODONE [Suspect]
  4. COCAINE [Suspect]
     Dosage: ( ) ( TO NOT CONTINUING)

REACTIONS (2)
  - Cardio-respiratory arrest [None]
  - Toxicity to various agents [None]
